FAERS Safety Report 8886667 (Version 3)
Quarter: 2013Q2

REPORT INFORMATION
  Report Type: Report from Study
  Country: JP (occurrence: JP)
  Receive Date: 20121105
  Receipt Date: 20130612
  Transmission Date: 20140414
  Serious: Yes (Hospitalization, Other)
  Sender: FDA-Public Use
  Company Number: JP-VERTEX PHARMACEUTICAL INC.-AE-2012-009773

PATIENT
  Age: 56 Year
  Sex: Female

DRUGS (21)
  1. VX-950 (TELAPREVIR) [Suspect]
     Indication: CHRONIC HEPATITIS C
     Dosage: 1500 MG, QD
     Route: 048
     Dates: start: 20120510, end: 20120531
  2. VX-950 (TELAPREVIR) [Suspect]
     Dosage: 1000 MG, QD
     Route: 048
     Dates: start: 20120601, end: 20120614
  3. VX-950 (TELAPREVIR) [Suspect]
     Dosage: 500 MG, QD
     Route: 048
     Dates: start: 20120615, end: 20120621
  4. VX-950 (TELAPREVIR) [Suspect]
     Dosage: 500 MG, QD
     Route: 048
     Dates: start: 20120705, end: 20120726
  5. VX-950 (TELAPREVIR) [Suspect]
     Dosage: 1000 MG, QD
     Route: 048
     Dates: start: 20120727, end: 20120819
  6. RIBAVIRIN [Suspect]
     Indication: CHRONIC HEPATITIS C
     Dosage: 600 MG, QD
     Route: 048
     Dates: start: 20120510, end: 20120531
  7. RIBAVIRIN [Suspect]
     Dosage: 400 MG, QD
     Route: 048
     Dates: start: 20120601, end: 20120614
  8. RIBAVIRIN [Suspect]
     Dosage: 200 MG, QD
     Route: 048
     Dates: start: 20120615, end: 20120621
  9. RIBAVIRIN [Suspect]
     Dosage: 400 MG, QD
     Route: 048
     Dates: start: 20120705
  10. PEGINTERFERON ALFA-2B [Suspect]
     Indication: CHRONIC HEPATITIS C
     Dosage: 1.5 ?G/KG, QW
     Route: 058
     Dates: start: 20120510, end: 20120531
  11. PEGINTERFERON ALFA-2B [Suspect]
     Dosage: 1.03 ?G/KG, QW
     Route: 058
     Dates: start: 20120601, end: 20120621
  12. PEGINTERFERON ALFA-2B [Suspect]
     Dosage: 1.03 ?G/KG, QW
     Route: 058
     Dates: start: 20120705
  13. GLYCORAN [Concomitant]
     Dosage: 750 MG, QD
     Route: 048
  14. OLMETEC [Concomitant]
     Dosage: 20 MG, QD
     Route: 048
  15. JANUVIA [Concomitant]
     Dosage: 50 MG, QD
     Route: 048
  16. ATELEC [Concomitant]
     Dosage: 1 DF, QD
     Route: 048
  17. ALOSENN [Concomitant]
     Dosage: 2 G, QD
     Route: 048
  18. GLUBES [Concomitant]
     Dosage: 3 DF, QD
     Route: 048
  19. GASTER D [Concomitant]
     Dosage: 20 MG, QD
     Route: 048
     Dates: start: 20120513, end: 20120519
  20. LOXONIN [Concomitant]
     Dosage: 60 MG/DAY, PRN
     Route: 048
     Dates: start: 20120629
  21. VOLTAREN [Concomitant]
     Dosage: 25 MG/DAY, PRN
     Route: 054
     Dates: start: 20120629

REACTIONS (2)
  - Decreased appetite [Recovered/Resolved]
  - Anaemia [Recovered/Resolved]
